FAERS Safety Report 26127475 (Version 2)
Quarter: 2025Q4

REPORT INFORMATION
  Report Type: Spontaneous
  Country: CN (occurrence: CN)
  Receive Date: 20251205
  Receipt Date: 20251218
  Transmission Date: 20260117
  Serious: No
  Sender: ELI LILLY AND COMPANY
  Company Number: CN-ELI_LILLY_AND_COMPANY-CN202512001311

PATIENT
  Sex: Female

DRUGS (6)
  1. TERIPARATIDE [Suspect]
     Active Substance: TERIPARATIDE
     Indication: Bone density abnormal
     Dosage: 20 UG, DAILY
     Route: 058
     Dates: start: 20251024, end: 20251028
  2. TERIPARATIDE [Suspect]
     Active Substance: TERIPARATIDE
     Dosage: 20 UG, DAILY
     Route: 058
     Dates: start: 20251122
  3. TERIPARATIDE [Suspect]
     Active Substance: TERIPARATIDE
     Dosage: 20 UG, DAILY
     Route: 058
     Dates: start: 20251124, end: 20251128
  4. DENOSUMAB [Concomitant]
     Active Substance: DENOSUMAB
     Indication: Product used for unknown indication
     Dosage: UNK, UNKNOWN
     Route: 065
  5. MILK CALCIUM [Concomitant]
     Indication: Product used for unknown indication
     Dosage: UNK, UNKNOWN
     Route: 065
  6. VITAMIN D NOS [Concomitant]
     Active Substance: CHOLECALCIFEROL\ERGOCALCIFEROL
     Indication: Product used for unknown indication
     Dosage: UNK, UNKNOWN
     Route: 065

REACTIONS (11)
  - Arrhythmia [Recovered/Resolved]
  - Hyperthyroidism [Not Recovered/Not Resolved]
  - Heart rate increased [Not Recovered/Not Resolved]
  - Heart rate irregular [Not Recovered/Not Resolved]
  - Blood pressure decreased [Not Recovered/Not Resolved]
  - Headache [Not Recovered/Not Resolved]
  - Dizziness [Not Recovered/Not Resolved]
  - Fatigue [Not Recovered/Not Resolved]
  - Vomiting [Not Recovered/Not Resolved]
  - Nausea [Not Recovered/Not Resolved]
  - Nausea [Not Recovered/Not Resolved]

NARRATIVE: CASE EVENT DATE: 20251028
